FAERS Safety Report 11587923 (Version 2)
Quarter: 2015Q4

REPORT INFORMATION
  Report Type: Report from Study
  Country: IL (occurrence: IL)
  Receive Date: 20151001
  Receipt Date: 20151006
  Transmission Date: 20160304
  Serious: Yes (Death, Congenital Anomaly, Other)
  Sender: FDA-Public Use
  Company Number: PHHY2015IL117863

PATIENT
  Age: 0 Day

DRUGS (1)
  1. GILENYA [Suspect]
     Active Substance: FINGOLIMOD HYDROCHLORIDE
     Indication: FOETAL EXPOSURE DURING PREGNANCY
     Dosage: MATERNAL DOSE: 0.5 MG, QD
     Route: 064

REACTIONS (4)
  - Maternal exposure before pregnancy [Unknown]
  - Immature respiratory system [Fatal]
  - Congenital cystic kidney disease [Unknown]
  - Premature baby [Unknown]

NARRATIVE: CASE EVENT DATE: 20150925
